FAERS Safety Report 24048844 (Version 1)
Quarter: 2024Q3

REPORT INFORMATION
  Report Type: Spontaneous
  Country: US (occurrence: None)
  Receive Date: 20240704
  Receipt Date: 20240704
  Transmission Date: 20241016
  Serious: Yes (Hospitalization)
  Sender: ASTRAZENECA
  Company Number: 2024A149476

PATIENT
  Sex: Female

DRUGS (4)
  1. TRUQAP [Suspect]
     Active Substance: CAPIVASERTIB
     Indication: Off label use
     Dosage: 200.0MG UNKNOWN
     Route: 048
     Dates: start: 202406
  2. FULVESTRANT [Concomitant]
     Active Substance: FULVESTRANT
  3. DILTIAZAM [Concomitant]
  4. METFORMIN [Concomitant]
     Active Substance: METFORMIN HYDROCHLORIDE

REACTIONS (3)
  - Diarrhoea [Recovering/Resolving]
  - Vomiting [Recovering/Resolving]
  - Blood glucose increased [Recovering/Resolving]
